FAERS Safety Report 7294076-4 (Version None)
Quarter: 2011Q1

REPORT INFORMATION
  Report Type: 
  Country: None (occurrence: None)
  Receive Date: 20110203
  Receipt Date: 20110125
  Transmission Date: 20110831
  Serious: Yes (Other)
  Sender: FDA-Public Use
  Company Number: 20109773

PATIENT
  Age: 33 Year
  Sex: Male

DRUGS (1)
  1. GABALON INTRATHECAL(BACLOFEN INJECTION) [Suspect]
     Indication: MUSCLE SPASTICITY
     Dosage: DAILY, INTRATHECAL
     Route: 037

REACTIONS (8)
  - IMPLANT SITE SWELLING [None]
  - HEADACHE [None]
  - NEOPLASM [None]
  - INCISION SITE COMPLICATION [None]
  - IMPLANT SITE WARMTH [None]
  - DEVICE LEAKAGE [None]
  - INTRACRANIAL HYPOTENSION [None]
  - IMPLANT SITE MASS [None]
